FAERS Safety Report 4519229-7 (Version None)
Quarter: 2004Q4

REPORT INFORMATION
  Report Type: 
  Country: None (occurrence: None)
  Receive Date: 20041206
  Receipt Date: 20040609
  Transmission Date: 20050328
  Serious: No
  Sender: FDA-Public Use
  Company Number: US-BRISTOL-MYERS SQUIBB COMPANY-12633616

PATIENT
  Age: 40 Year
  Sex: Male

DRUGS (8)
  1. STAVUDINE [Suspect]
     Indication: ACQUIRED IMMUNODEFICIENCY SYNDROME
  2. DIDANOSINE [Suspect]
     Indication: ACQUIRED IMMUNODEFICIENCY SYNDROME
  3. LOPINAVIR + RITONAVIR [Suspect]
     Indication: ACQUIRED IMMUNODEFICIENCY SYNDROME
  4. NELFINAVIR [Concomitant]
     Indication: ACQUIRED IMMUNODEFICIENCY SYNDROME
  5. NEVIRAPINE [Concomitant]
     Indication: ACQUIRED IMMUNODEFICIENCY SYNDROME
  6. SULFAMETHOXAZOLE + TRIMETHOPRIM [Concomitant]
     Indication: KAPOSI'S SARCOMA
  7. INDINAVIR [Concomitant]
     Indication: ACQUIRED IMMUNODEFICIENCY SYNDROME
  8. RITONAVIR [Concomitant]
     Indication: ACQUIRED IMMUNODEFICIENCY SYNDROME

REACTIONS (1)
  - BLOOD TRIGLYCERIDES INCREASED [None]
